FAERS Safety Report 18680024 (Version 3)
Quarter: 2021Q1

REPORT INFORMATION
  Report Type: Report from Study
  Country: AR (occurrence: AR)
  Receive Date: 20201230
  Receipt Date: 20210316
  Transmission Date: 20210419
  Serious: Yes (Hospitalization, Other)
  Sender: FDA-Public Use
  Company Number: AR-KYOWAKIRIN-2020BKK020277

PATIENT

DRUGS (4)
  1. CHOLECALCIFEROL [Concomitant]
     Active Substance: CHOLECALCIFEROL
     Indication: PRODUCT USED FOR UNKNOWN INDICATION
     Dosage: 100000 (1 IN 3 M)
     Route: 065
  2. CRYSVITA [Suspect]
     Active Substance: BUROSUMAB-TWZA
     Indication: HEREDITARY HYPOPHOSPHATAEMIC RICKETS
     Dosage: 60 MG (60 MG,1 IN 1 M)
     Route: 058
     Dates: start: 20201030
  3. CRYSVITA [Suspect]
     Active Substance: BUROSUMAB-TWZA
     Dosage: 60 MG (60 MG,1 IN 1 M)
     Route: 058
     Dates: start: 20200211
  4. CRYSVITA [Suspect]
     Active Substance: BUROSUMAB-TWZA
     Dosage: 50 MG
     Route: 058
     Dates: start: 20210204

REACTIONS (3)
  - Product dose omission issue [Unknown]
  - Road traffic accident [Recovered/Resolved]
  - Jaw fracture [Recovering/Resolving]

NARRATIVE: CASE EVENT DATE: 20201103
